FAERS Safety Report 17195411 (Version 1)
Quarter: 2019Q4

REPORT INFORMATION
  Report Type: Spontaneous
  Country: FR (occurrence: FR)
  Receive Date: 20191224
  Receipt Date: 20191224
  Transmission Date: 20200122
  Serious: Yes (Hospitalization, Other)
  Sender: FDA-Public Use
  Company Number: FR-SA-2019SA353397

PATIENT
  Age: 84 Year
  Sex: Male
  Weight: 83 kg

DRUGS (2)
  1. LEVOFLOXACIN. [Suspect]
     Active Substance: LEVOFLOXACIN
     Indication: OSTEITIS
     Dosage: 750 MG, QD
     Route: 048
     Dates: start: 20191113
  2. RIFAMPICIN [Suspect]
     Active Substance: RIFAMPIN
     Indication: OSTEITIS
     Dosage: 1200 MG, QD
     Route: 048
     Dates: start: 20191113, end: 20191125

REACTIONS (5)
  - Vomiting [Recovering/Resolving]
  - Dehydration [Recovering/Resolving]
  - Nausea [Recovering/Resolving]
  - Acute kidney injury [Recovering/Resolving]
  - Asthenia [Recovering/Resolving]

NARRATIVE: CASE EVENT DATE: 20191125
